FAERS Safety Report 5585501-5 (Version None)
Quarter: 2008Q1

REPORT INFORMATION
  Report Type: 
  Country: None (occurrence: None)
  Receive Date: 20080104
  Receipt Date: 20071228
  Transmission Date: 20080703
  Serious: Yes (Hospitalization)
  Sender: FDA-Public Use
  Company Number: 2007SP025482

PATIENT
  Age: 3 Year
  Sex: Male
  Weight: 21 kg

DRUGS (6)
  1. TEMODAL [Suspect]
     Indication: GLIOMA
     Dosage: ; PO
     Route: 048
  2. VINCRISTINE [Suspect]
     Indication: GLIOMA
     Dosage: ; IV
     Route: 042
     Dates: start: 20070112
  3. CARBOPLATIN [Suspect]
     Indication: GLIOMA
     Dosage: ; IV
     Route: 042
     Dates: start: 20070112
  4. BACTRIM [Suspect]
     Indication: PNEUMOCYSTIS JIROVECI INFECTION
     Dosage: ; PO
     Route: 048
     Dates: start: 20070112
  5. DECTANCYL [Concomitant]
  6. MOPRAL [Concomitant]

REACTIONS (4)
  - ABDOMINAL PAIN [None]
  - LEUKOPENIA [None]
  - NECK PAIN [None]
  - NEUROTOXICITY [None]
